FAERS Safety Report 9748429 (Version 2)
Quarter: 2013Q4

REPORT INFORMATION
  Report Type: Spontaneous
  Country: US (occurrence: None)
  Receive Date: 20131209
  Receipt Date: 20131219
  Transmission Date: 20140711
  Serious: Yes (Death, Hospitalization, Other)
  Sender: FDA-Public Use
  Company Number: 2013P1021432

PATIENT
  Age: 10 Year
  Sex: Male

DRUGS (1)
  1. ACTIMMUNE [Suspect]
     Indication: NEUTROPHIL FUNCTION DISORDER
     Route: 058
     Dates: start: 20121030

REACTIONS (5)
  - Death [None]
  - Pulmonary mycosis [None]
  - Pericardial effusion [None]
  - Procedural complication [None]
  - Bone marrow transplant [None]
